FAERS Safety Report 9438017 (Version 3)
Quarter: 2014Q3

REPORT INFORMATION
  Report Type: Spontaneous
  Country: US (occurrence: US)
  Receive Date: 20130802
  Receipt Date: 20140716
  Transmission Date: 20150326
  Serious: Yes (Hospitalization, Other)
  Sender: FDA-Public Use
  Company Number: US-009507513-1307USA017137

PATIENT
  Sex: Female
  Weight: 56.69 kg

DRUGS (2)
  1. PROAIR HFA [Concomitant]
     Active Substance: ALBUTEROL SULFATE
     Indication: ASTHMA
     Dosage: UNK
     Dates: start: 2007
  2. NUVARING [Suspect]
     Active Substance: ETHINYL ESTRADIOL\ETONOGESTREL
     Indication: CONTRACEPTION
     Dosage: UNK
     Route: 067
     Dates: start: 201210, end: 20130403

REACTIONS (9)
  - Uterine dilation and curettage [Unknown]
  - Coagulopathy [Unknown]
  - Device expulsion [Unknown]
  - Deep vein thrombosis [Unknown]
  - Anaemia [Unknown]
  - Pulmonary embolism [Unknown]
  - Chest pain [Unknown]
  - Incorrect drug administration duration [Unknown]
  - Migraine [Unknown]

NARRATIVE: CASE EVENT DATE: 201302
